FAERS Safety Report 7954130-8 (Version None)
Quarter: 2011Q4

REPORT INFORMATION
  Report Type: 
  Country: None (occurrence: None)
  Receive Date: 20111202
  Receipt Date: 20111122
  Transmission Date: 20120403
  Serious: Yes (Hospitalization)
  Sender: FDA-Public Use
  Company Number: US-BAYER-2011-033383

PATIENT
  Age: 34 Year
  Sex: Female
  Weight: 81.633 kg

DRUGS (2)
  1. YASMIN [Suspect]
     Indication: CONTRACEPTION
     Dosage: UNK
     Dates: start: 20000101, end: 20070101
  2. NSAID'S [Concomitant]
     Indication: PAIN
     Dosage: UNK UNK, PRN
     Route: 048

REACTIONS (3)
  - INJURY [None]
  - PAIN [None]
  - GALLBLADDER DISORDER [None]
